FAERS Safety Report 6573670-X (Version None)
Quarter: 2010Q1

REPORT INFORMATION
  Report Type: 
  Country: None (occurrence: None)
  Receive Date: 20100204
  Receipt Date: 20100204
  Transmission Date: 20100710
  Serious: Yes (Other)
  Sender: FDA-Public Use
  Company Number: None

PATIENT
  Age: 21 Year
  Sex: Male

DRUGS (2)
  1. NYQUIL AT BEDTIME PREVIOUS EVENING [Suspect]
     Indication: ATTENTION DEFICIT/HYPERACTIVITY DISORDER
     Dosage: ONCE BID (40 MG) ONGOING DAILY
     Route: 048
  2. AMPHETAMINE AND DEXTROAMPHETAMINE SALTS [Suspect]

REACTIONS (3)
  - DYSPNOEA [None]
  - PHARYNGEAL OEDEMA [None]
  - URTICARIA [None]
